FAERS Safety Report 19521181 (Version 1)
Quarter: 2021Q3

REPORT INFORMATION
  Report Type: Spontaneous
  Country: NL (occurrence: NL)
  Receive Date: 20210712
  Receipt Date: 20210712
  Transmission Date: 20211014
  Serious: Yes (Other)
  Sender: FDA-Public Use
  Company Number: NL-MYLANLABS-2021M1041050

PATIENT
  Sex: Male
  Weight: 83 kg

DRUGS (11)
  1. PARACETAMOL [Concomitant]
     Active Substance: ACETAMINOPHEN
     Dosage: TABLET, 500 MG (MILLIGRAM)
  2. QUETIAPINE. [Suspect]
     Active Substance: QUETIAPINE
     Indication: HALLUCINATION
     Dosage: 25 MILLIGRAM, BID
     Dates: start: 20210331, end: 20210402
  3. FOLIUMZUUR [Concomitant]
     Active Substance: FOLIC ACID
     Dosage: TABLET, 0,5 MG (MILLIGRAM)
  4. LORAZEPAM. [Concomitant]
     Active Substance: LORAZEPAM
     Dosage: TABLET, 1 MG (MILLIGRAM)
  5. COLECALCIFEROL [Concomitant]
     Active Substance: CHOLECALCIFEROL
     Dosage: DRANK 25.000IE
  6. ENALAPRIL [Concomitant]
     Active Substance: ENALAPRIL
     Dosage: TABLET, 10 MG (MILLIGRAM)
  7. ACETYLSALICYLZUUR [Concomitant]
     Active Substance: ASPIRIN
     Dosage: TABLET, 80 MG (MILLIGRAM)
  8. MACROGOL [Concomitant]
     Active Substance: POLYETHYLENE GLYCOLS
     Dosage: POEDER VOOR DRANK
  9. PANTOPRAZOL                        /01263201/ [Concomitant]
     Active Substance: PANTOPRAZOLE
     Dosage: POEDER INJECTIEVLOEISTOF, 40 MG (MILLIGRAM)
  10. METFORMINE                         /00082701/ [Concomitant]
     Active Substance: METFORMIN HYDROCHLORIDE
     Dosage: TABLET, 850 MG (MILLIGRAM)
  11. GABAPENTIN. [Concomitant]
     Active Substance: GABAPENTIN
     Dosage: CAPSULE, 300 MG (MILLIGRAM)

REACTIONS (1)
  - Coma [Recovered/Resolved]
